FAERS Safety Report 5500936-4 (Version None)
Quarter: 2007Q4

REPORT INFORMATION
  Report Type: 
  Country: None (occurrence: None)
  Receive Date: 20071029
  Receipt Date: 20071019
  Transmission Date: 20080405
  Serious: Yes (Other)
  Sender: FDA-Public Use
  Company Number: PHEH2007US13953

PATIENT
  Age: 75 Year
  Sex: Female

DRUGS (3)
  1. ZOMETA [Suspect]
     Indication: METASTASES TO BONE
     Dosage: 4 MG Q28DAYS
     Dates: start: 20060101, end: 20061101
  2. COUMADIN [Concomitant]
  3. INSULIN [Concomitant]
     Indication: DIABETES MELLITUS

REACTIONS (8)
  - BONE DISORDER [None]
  - ERYTHEMA [None]
  - GINGIVAL INFECTION [None]
  - LYMPHADENOPATHY [None]
  - OSTEOMYELITIS [None]
  - OSTEONECROSIS [None]
  - PAIN [None]
  - SWELLING [None]
